FAERS Safety Report 7427463-1 (Version None)
Quarter: 2011Q2

REPORT INFORMATION
  Report Type: 
  Country: None (occurrence: None)
  Receive Date: 20110420
  Receipt Date: 20090929
  Transmission Date: 20111010
  Serious: Yes (Hospitalization, Other)
  Sender: FDA-Public Use
  Company Number: DE-GENENTECH-316986

PATIENT
  Age: 80 Year
  Sex: Male

DRUGS (1)
  1. LUCENTIS [Suspect]
     Indication: MACULAR DEGENERATION
     Dosage: UNK
     Route: 031
     Dates: start: 20081008

REACTIONS (8)
  - GASTROENTERITIS VIRAL [None]
  - CARDIAC DISORDER [None]
  - FEMORAL NECK FRACTURE [None]
  - CEREBROVASCULAR ACCIDENT [None]
  - DEAFNESS [None]
  - PULMONARY OEDEMA [None]
  - RIB FRACTURE [None]
  - OEDEMA PERIPHERAL [None]
